FAERS Safety Report 6618964-4 (Version None)
Quarter: 2010Q1

REPORT INFORMATION
  Report Type: 
  Country: None (occurrence: None)
  Receive Date: 20100302
  Receipt Date: 20100218
  Transmission Date: 20100710
  Serious: Yes (Other)
  Sender: FDA-Public Use
  Company Number: TPA2010A00783

PATIENT
  Age: 60 Year
  Sex: Female

DRUGS (9)
  1. ULORIC [Suspect]
     Indication: GOUTY TOPHUS
     Dosage: 120 MG, 1 IN 1 D, PER ORAL; 80 MG, 1 IN 1 D, PER ORAL; 40 MG, 1 IN 1 D, PER ORAL
     Route: 048
     Dates: start: 20090429, end: 20090726
  2. ULORIC [Suspect]
     Indication: GOUTY TOPHUS
     Dosage: 120 MG, 1 IN 1 D, PER ORAL; 80 MG, 1 IN 1 D, PER ORAL; 40 MG, 1 IN 1 D, PER ORAL
     Route: 048
     Dates: start: 20090727, end: 20100126
  3. ULORIC [Suspect]
     Indication: GOUTY TOPHUS
     Dosage: 120 MG, 1 IN 1 D, PER ORAL; 80 MG, 1 IN 1 D, PER ORAL; 40 MG, 1 IN 1 D, PER ORAL
     Route: 048
     Dates: start: 20100127, end: 20100216
  4. ORENCIA (ALL OTHER THERAPEUTIC PRODUCTS) [Concomitant]
  5. PREDNISONE [Concomitant]
  6. METHOTREXATE [Concomitant]
  7. LYRICA [Concomitant]
  8. FORTEO [Concomitant]
  9. LORTAB [Concomitant]

REACTIONS (3)
  - BLINDNESS TRANSIENT [None]
  - BLINDNESS UNILATERAL [None]
  - RETINAL HAEMORRHAGE [None]
